FAERS Safety Report 10631030 (Version 1)
Quarter: 2014Q4

REPORT INFORMATION
  Report Type: Spontaneous
  Country: US (occurrence: US)
  Receive Date: 20141205
  Receipt Date: 20141205
  Transmission Date: 20150529
  Serious: No
  Sender: FDA-Public Use
  Company Number: US-BRISTOL-MYERS SQUIBB COMPANY-21529326

PATIENT
  Age: 46 Year
  Sex: Female
  Weight: 81.63 kg

DRUGS (3)
  1. BUPROPION [Suspect]
     Active Substance: BUPROPION
  2. ELIQUIS [Suspect]
     Active Substance: APIXABAN
     Indication: THROMBOSIS PROPHYLAXIS
  3. CONTRACEPTIVE [Suspect]
     Active Substance: UNSPECIFIED INGREDIENT
     Route: 048

REACTIONS (1)
  - Menorrhagia [Unknown]
